FAERS Safety Report 25495004 (Version 1)
Quarter: 2025Q2

REPORT INFORMATION
  Report Type: Spontaneous
  Country: US (occurrence: US)
  Receive Date: 20250630
  Receipt Date: 20250630
  Transmission Date: 20250717
  Serious: No
  Sender: MYLAN
  Company Number: US-MYLANLABS-2025M1052162

PATIENT
  Age: 39 Year
  Sex: Female
  Weight: 86.18 kg

DRUGS (1)
  1. XULANE [Suspect]
     Active Substance: ETHINYL ESTRADIOL\NORELGESTROMIN
     Indication: Contraception
     Dosage: 150/35 MICROGRAM, QD (PER DAY, ONCE WEEKLY)
     Dates: start: 20250608

REACTIONS (2)
  - Lack of application site rotation [Unknown]
  - Product adhesion issue [Unknown]

NARRATIVE: CASE EVENT DATE: 20250609
